FAERS Safety Report 25866616 (Version 4)
Quarter: 2025Q4

REPORT INFORMATION
  Report Type: Report from Study
  Country: AU (occurrence: AU)
  Receive Date: 20250930
  Receipt Date: 20251211
  Transmission Date: 20260117
  Serious: Yes (Hospitalization, Other)
  Sender: APELLIS PHARMACEUTICALS
  Company Number: AU-BIOVITRUM-2024-AU-015493

PATIENT

DRUGS (4)
  1. EMPAVELI [Suspect]
     Active Substance: PEGCETACOPLAN
     Indication: Paroxysmal nocturnal haemoglobinuria
     Dosage: 1080MG/20ML UNIT:1 TWICE PER WEEK/ TWICE WEEKLY
     Route: 058
     Dates: start: 20241203
  2. EMPAVELI [Suspect]
     Active Substance: PEGCETACOPLAN
     Dosage: TWICE A WEEK
     Route: 058
     Dates: start: 20241204
  3. ECULIZUMAB [Suspect]
     Active Substance: ECULIZUMAB
     Indication: Product used for unknown indication
  4. ECULIZUMAB [Suspect]
     Active Substance: ECULIZUMAB

REACTIONS (35)
  - Injection site discolouration [Unknown]
  - Headache [Unknown]
  - Sleep disorder [Unknown]
  - Injection site pain [Not Recovered/Not Resolved]
  - Injection site swelling [Not Recovered/Not Resolved]
  - Injection site erythema [Unknown]
  - SARS-CoV-2 test positive [Recovering/Resolving]
  - Fatigue [Recovering/Resolving]
  - Gait disturbance [Unknown]
  - Jaundice [Unknown]
  - Product delivery mechanism issue [Unknown]
  - Product contamination [Unknown]
  - Energy increased [Recovered/Resolved]
  - Menopausal symptoms [Unknown]
  - Uterine spasm [Unknown]
  - Abdominal pain [Recovering/Resolving]
  - Neuropathy peripheral [Unknown]
  - Condition aggravated [Unknown]
  - Wrong technique in product usage process [Unknown]
  - Skin discolouration [Unknown]
  - Haemoglobin abnormal [Not Recovered/Not Resolved]
  - Contusion [Unknown]
  - Abdominal distension [Unknown]
  - Diarrhoea [Unknown]
  - Malaise [Unknown]
  - Influenza like illness [Unknown]
  - Blood lactate dehydrogenase increased [Recovering/Resolving]
  - Chromaturia [Unknown]
  - Influenza [Recovering/Resolving]
  - Tremor [Unknown]
  - Muscular weakness [Unknown]
  - Migraine [Unknown]
  - Ocular discomfort [Unknown]
  - Disturbance in attention [Unknown]
  - Chest pain [Unknown]

NARRATIVE: CASE EVENT DATE: 20241216
